FAERS Safety Report 5930610-1 (Version None)
Quarter: 2008Q4

REPORT INFORMATION
  Report Type: 
  Country: None (occurrence: None)
  Receive Date: 20081021
  Receipt Date: 20081006
  Transmission Date: 20090506
  Serious: Yes (Death)
  Sender: FDA-Public Use
  Company Number: 2008002659

PATIENT
  Age: 57 Year
  Sex: Female
  Weight: 50 kg

DRUGS (2)
  1. ERLOTINIB (ERLOTINIB) (TABLET) (ERLOTINIB) [Suspect]
     Indication: LUNG NEOPLASM MALIGNANT
     Dosage: (150 MG), ORAL
     Route: 048
     Dates: start: 20071020, end: 20080825
  2. SUNITINIB/PLACEBO [Suspect]
     Indication: LUNG NEOPLASM MALIGNANT
     Dosage: (37.5 MG, QD), ORAL
     Route: 048
     Dates: start: 20071020, end: 20080825

REACTIONS (2)
  - PYREXIA [None]
  - SPINAL CORD COMPRESSION [None]
